FAERS Safety Report 9640623 (Version 1)
Quarter: 2013Q4

REPORT INFORMATION
  Report Type: Report from Study
  Country: US (occurrence: US)
  Receive Date: 20131023
  Receipt Date: 20131023
  Transmission Date: 20140711
  Serious: No
  Sender: FDA-Public Use
  Company Number: US-ABBVIE-13P-163-1099002-00

PATIENT
  Age: 37 Year
  Sex: Female
  Weight: 115.77 kg

DRUGS (5)
  1. LUPRON DEPOT [Suspect]
     Indication: ENDOMETRIOSIS
     Dates: start: 20130416
  2. DEMSER [Concomitant]
     Indication: PHAEOCHROMOCYTOMA
  3. LEXAPRO [Concomitant]
     Indication: DEPRESSION
  4. SYNTHROID [Concomitant]
     Indication: HYPOTHYROIDISM
  5. DEXILENT [Concomitant]
     Indication: GASTROOESOPHAGEAL REFLUX DISEASE

REACTIONS (3)
  - Sinusitis [Recovering/Resolving]
  - Lower respiratory tract infection [Recovering/Resolving]
  - Cough [Recovering/Resolving]
